FAERS Safety Report 23273867 (Version 1)
Quarter: 2023Q4

REPORT INFORMATION
  Report Type: Report from Study
  Country: FR (occurrence: FR)
  Receive Date: 20231207
  Receipt Date: 20231207
  Transmission Date: 20240110
  Serious: Yes (Other)
  Sender: FDA-Public Use
  Company Number: FR-ABBVIE-5528349

PATIENT

DRUGS (2)
  1. VENETOCLAX [Suspect]
     Active Substance: VENETOCLAX
     Indication: Chronic lymphocytic leukaemia
     Route: 048
  2. VIDAZA [Suspect]
     Active Substance: AZACITIDINE
     Indication: Chronic lymphocytic leukaemia
     Route: 065

REACTIONS (6)
  - Tumour lysis syndrome [Unknown]
  - Infection susceptibility increased [Unknown]
  - Vomiting [Unknown]
  - Cytopenia [Unknown]
  - Nausea [Unknown]
  - Haematotoxicity [Unknown]
